FAERS Safety Report 7511349-8 (Version None)
Quarter: 2011Q2

REPORT INFORMATION
  Report Type: 
  Country: None (occurrence: None)
  Receive Date: 20110519
  Receipt Date: 20110506
  Transmission Date: 20111010
  Serious: Yes (Death, Hospitalization)
  Sender: FDA-Public Use
  Company Number: AUR-APL-2011-01601

PATIENT
  Age: 9 Year
  Sex: Male

DRUGS (5)
  1. LAMOTRIGINE [Suspect]
  2. VITAMIN K TAB [Concomitant]
  3. THIOPENTAL SODIUM [Concomitant]
  4. LEVETIRACETAM [Suspect]
  5. DIAZEPAM [Concomitant]

REACTIONS (8)
  - AUTISM [None]
  - HYPERPYREXIA [None]
  - CHOREOATHETOSIS [None]
  - METABOLIC ACIDOSIS [None]
  - DYSTONIA [None]
  - NEUROLOGICAL DECOMPENSATION [None]
  - STATUS EPILEPTICUS [None]
  - CARDIO-RESPIRATORY ARREST [None]
